FAERS Safety Report 9473119 (Version 1)
Quarter: 2013Q3

REPORT INFORMATION
  Report Type: Spontaneous
  Country: US (occurrence: US)
  Receive Date: 20130823
  Receipt Date: 20130823
  Transmission Date: 20140515
  Serious: No
  Sender: FDA-Public Use
  Company Number: US-BRISTOL-MYERS SQUIBB COMPANY-17458381

PATIENT
  Age: 66 Year
  Sex: Male
  Weight: 102.04 kg

DRUGS (6)
  1. SPRYCEL [Suspect]
     Indication: CHRONIC MYELOID LEUKAEMIA
     Dosage: 16NV:70MG/D,INCRSED-70MG BID, INTEPD ON 18DC12,RESTARTED ON 16JN13:70MG/D,INCSD TO 100 MG/D:14FEB13
     Dates: start: 20121116
  2. DICLOFENAC [Concomitant]
  3. OXACILLIN SODIUM [Concomitant]
  4. MULTIVITAMIN [Concomitant]
  5. VITAMIN E [Concomitant]
  6. OMEGA-3 [Concomitant]

REACTIONS (2)
  - Pleural effusion [Unknown]
  - Rash [Recovering/Resolving]
